FAERS Safety Report 11521355 (Version 1)
Quarter: 2015Q3

REPORT INFORMATION
  Report Type: Spontaneous
  Country: US (occurrence: US)
  Receive Date: 20150918
  Receipt Date: 20150918
  Transmission Date: 20151125
  Serious: No
  Sender: FDA-Public Use
  Company Number: US-ROCHE-758446

PATIENT
  Age: 55 Year
  Sex: Male

DRUGS (9)
  1. PEGASYS [Suspect]
     Active Substance: PEGINTERFERON ALFA-2A
     Indication: HEPATITIS C
     Route: 065
  2. RIBAVIRIN. [Suspect]
     Active Substance: RIBAVIRIN
     Indication: HEPATITIS C
     Dosage: DIVIDED DOSES
     Route: 065
  3. METOPROLOL [Concomitant]
     Active Substance: METOPROLOL
     Indication: HYPERTENSION
     Route: 065
  4. S-ADENOSYL-L-METHIONINE [Concomitant]
     Active Substance: ADEMETIONINE
     Indication: DEPRESSION
     Route: 065
  5. PROGRAFT [Concomitant]
     Active Substance: TACROLIMUS
     Indication: LIVER TRANSPLANT
     Route: 065
  6. DAPSONE. [Concomitant]
     Active Substance: DAPSONE
     Indication: LIVER TRANSPLANT
     Route: 065
  7. TRAMADOL. [Concomitant]
     Active Substance: TRAMADOL
     Indication: BACK PAIN
     Dosage: BIWEEKLY EVERY 6 MONTHS AS NEEDED
     Route: 008
  8. CALCIUM [Concomitant]
     Active Substance: CALCIUM
     Indication: LIVER TRANSPLANT
     Route: 065
  9. PROTONIX [Concomitant]
     Active Substance: PANTOPRAZOLE SODIUM
     Indication: GASTROOESOPHAGEAL REFLUX DISEASE
     Route: 065

REACTIONS (5)
  - Chills [Not Recovered/Not Resolved]
  - Pain [Not Recovered/Not Resolved]
  - Vomiting [Not Recovered/Not Resolved]
  - Hyperhidrosis [Not Recovered/Not Resolved]
  - Nausea [Not Recovered/Not Resolved]

NARRATIVE: CASE EVENT DATE: 20110202
